FAERS Safety Report 13716461 (Version 1)
Quarter: 2017Q3

REPORT INFORMATION
  Report Type: Spontaneous
  Country: US (occurrence: US)
  Receive Date: 20170703
  Receipt Date: 20170703
  Transmission Date: 20171127
  Serious: Yes (Hospitalization)
  Sender: FDA-Public Use
  Company Number: None

PATIENT
  Age: 62 Year
  Sex: Male
  Weight: 89 kg

DRUGS (1)
  1. APIXABAN [Suspect]
     Active Substance: APIXABAN
     Indication: PULMONARY EMBOLISM
     Dates: start: 20161230, end: 20170417

REACTIONS (5)
  - Dizziness [None]
  - Pulmonary embolism [None]
  - Investigation abnormal [None]
  - Treatment failure [None]
  - Dyspnoea [None]

NARRATIVE: CASE EVENT DATE: 20170417
